FAERS Safety Report 5219143-8 (Version None)
Quarter: 2007Q1

REPORT INFORMATION
  Report Type: 
  Country: None (occurrence: None)
  Receive Date: 20061121
  Receipt Date: 20060918
  Transmission Date: 20070707
  Serious: No
  Sender: FDA-Public Use
  Company Number: TPA2006A01611

PATIENT
  Age: 56 Year
  Sex: Female
  Weight: 90.7194 kg

DRUGS (3)
  1. ROZEREM [Suspect]
     Indication: SLEEP DISORDER
     Dosage: 8 MG, QHS, PER ORAL
     Route: 048
     Dates: start: 20060915
  2. LEXAPRO [Concomitant]
  3. NASONEX (MOMETASONE FUROATE) (SPRAY (NOT INHALATION)) [Concomitant]

REACTIONS (4)
  - FEELING ABNORMAL [None]
  - MIDDLE INSOMNIA [None]
  - MYALGIA [None]
  - NAUSEA [None]
